FAERS Safety Report 25603217 (Version 1)
Quarter: 2025Q3

REPORT INFORMATION
  Report Type: Report from Study
  Country: CA (occurrence: CA)
  Receive Date: 20250724
  Receipt Date: 20250724
  Transmission Date: 20251021
  Serious: Yes (Hospitalization)
  Sender: VERITY PHARMACEUTICALS INC.
  Company Number: CA-VER-202500161

PATIENT
  Age: 78 Year
  Sex: Male

DRUGS (2)
  1. TRELSTAR [Suspect]
     Active Substance: TRIPTORELIN PAMOATE
     Indication: Prostate cancer
     Dosage: POWDER FOR PROLONGED-RELEASE SUSPENSION FOR INJECTION
     Route: 030
     Dates: start: 20230907, end: 20230907
  2. TRELSTAR [Suspect]
     Active Substance: TRIPTORELIN PAMOATE
     Indication: Prostate cancer
     Dosage: POWDER FOR PROLONGED-RELEASE SUSPENSION FOR INJECTION
     Route: 030
     Dates: start: 202412, end: 202412

REACTIONS (1)
  - Hospitalisation [Recovered/Resolved]

NARRATIVE: CASE EVENT DATE: 20241201
